FAERS Safety Report 8282688-0 (Version None)
Quarter: 2012Q2

REPORT INFORMATION
  Report Type: 
  Country: None (occurrence: None)
  Receive Date: 20120410
  Receipt Date: 20120326
  Transmission Date: 20120825
  Serious: Yes (Life-Threatening)
  Sender: FDA-Public Use
  Company Number: DSM-2012-00373

PATIENT
  Age: 70 Year
  Sex: Male

DRUGS (3)
  1. OLMESARTAN MEDOXOMIL [Suspect]
     Indication: PRODUCT USED FOR UNKNOWN INDICATION
     Dosage: ORAL
     Route: 048
     Dates: start: 20040201
  2. SYMBICORT (FORMOTEROL FUMARATE, BUDESONIDE) (FORMOTEROL FUMARATE, BUDE [Concomitant]
  3. AMLODIPINE [Concomitant]

REACTIONS (1)
  - SQUAMOUS CELL CARCINOMA [None]
